FAERS Safety Report 21419666 (Version 3)
Quarter: 2022Q4

REPORT INFORMATION
  Report Type: Spontaneous
  Country: DE (occurrence: DE)
  Receive Date: 20221006
  Receipt Date: 20221218
  Transmission Date: 20230113
  Serious: Yes (Other)
  Sender: FDA-Public Use
  Company Number: DE-JNJFOC-20220962100

PATIENT
  Age: 36 Year
  Sex: Male

DRUGS (1)
  1. STELARA [Suspect]
     Active Substance: USTEKINUMAB
     Indication: Crohn^s disease
     Route: 040

REACTIONS (1)
  - IgA nephropathy [Not Recovered/Not Resolved]

NARRATIVE: CASE EVENT DATE: 20220923
